FAERS Safety Report 14366205 (Version 1)
Quarter: 2018Q1

REPORT INFORMATION
  Report Type: Spontaneous
  Country: US (occurrence: US)
  Receive Date: 20180109
  Receipt Date: 20180109
  Transmission Date: 20180509
  Serious: No
  Sender: FDA-Public Use
  Company Number: US-BAYER-2017-251456

PATIENT
  Age: 64 Year
  Sex: Female
  Weight: 65.99 kg

DRUGS (3)
  1. ASPIRIN [ACETYLSALICYLIC ACID] [Concomitant]
     Active Substance: ASPIRIN
     Indication: PAIN
     Dosage: 1 DF, UNK
     Route: 048
  2. MIRALAX [Suspect]
     Active Substance: POLYETHYLENE GLYCOL 3350
     Dosage: 2 DF, UNK (CAPFUL)
     Route: 048
  3. VALIUM [Concomitant]
     Active Substance: DIAZEPAM
     Indication: ABDOMINAL PAIN UPPER
     Dosage: UNK

REACTIONS (4)
  - Off label use [None]
  - Product use complaint [None]
  - Inappropriate schedule of drug administration [Unknown]
  - Incorrect dose administered [Unknown]
